FAERS Safety Report 11883698 (Version 1)
Quarter: 2016Q1

REPORT INFORMATION
  Report Type: Spontaneous
  Country: US (occurrence: US)
  Receive Date: 20160101
  Receipt Date: 20160101
  Transmission Date: 20160526
  Serious: No
  Sender: FDA-Public Use
  Company Number: US-ASTRAZENECA-2015SF27761

PATIENT
  Age: 960 Month
  Sex: Male

DRUGS (4)
  1. ZETIA [Concomitant]
     Active Substance: EZETIMIBE
     Indication: BLOOD CHOLESTEROL ABNORMAL
  2. TOPROL XL [Suspect]
     Active Substance: METOPROLOL SUCCINATE
     Indication: CARDIAC DISORDER
     Route: 048
  3. ZOCOR [Concomitant]
     Active Substance: SIMVASTATIN
     Indication: BLOOD CHOLESTEROL ABNORMAL
     Dosage: AT NIGHT
  4. ZOLADEX [Suspect]
     Active Substance: GOSERELIN ACETATE
     Indication: PROSTATE CANCER
     Route: 058
     Dates: start: 20150401, end: 20150401

REACTIONS (14)
  - Hot flush [Unknown]
  - Inflammation [Unknown]
  - Body height decreased [Unknown]
  - Metabolic disorder [Unknown]
  - Pain in extremity [Unknown]
  - Blood testosterone decreased [Unknown]
  - Hyperhidrosis [Unknown]
  - Muscular weakness [Not Recovered/Not Resolved]
  - Muscle mass [Unknown]
  - Pain [Unknown]
  - Myalgia [Unknown]
  - Limb deformity [Not Recovered/Not Resolved]
  - Arthralgia [Unknown]
  - Gynaecomastia [Unknown]

NARRATIVE: CASE EVENT DATE: 201507
